FAERS Safety Report 7700541-5 (Version None)
Quarter: 2011Q3

REPORT INFORMATION
  Report Type: 
  Country: None (occurrence: None)
  Receive Date: 20110822
  Receipt Date: 20110818
  Transmission Date: 20111222
  Serious: Yes (Death, Hospitalization)
  Sender: FDA-Public Use
  Company Number: VE-PFIZER INC-2011184661

PATIENT
  Age: 77 Year
  Sex: Male

DRUGS (1)
  1. CADUET [Suspect]
     Indication: HYPERTENSION
     Dosage: 5 MG/20 MG, 1X/DAY
     Route: 048

REACTIONS (2)
  - DISEASE COMPLICATION [None]
  - PROSTATE CANCER [None]
